FAERS Safety Report 13703803 (Version 2)
Quarter: 2017Q3

REPORT INFORMATION
  Report Type: Spontaneous
  Country: US (occurrence: US)
  Receive Date: 20170629
  Receipt Date: 20170707
  Transmission Date: 20171127
  Serious: Yes (Other)
  Sender: FDA-Public Use
  Company Number: US-CELGENEUS-USA-20170608548

PATIENT
  Age: 55 Year
  Sex: Female

DRUGS (1)
  1. OTEZLA [Suspect]
     Active Substance: APREMILAST
     Indication: PSORIASIS
     Dosage: 60 MILLIGRAM
     Route: 048
     Dates: start: 20170621

REACTIONS (7)
  - Restlessness [Unknown]
  - Anxiety [Unknown]
  - Headache [Unknown]
  - Sleep disorder [Unknown]
  - Somnolence [Unknown]
  - Agitation [Unknown]
  - Dizziness [Unknown]

NARRATIVE: CASE EVENT DATE: 20170621
